FAERS Safety Report 10434514 (Version 2)
Quarter: 2014Q3

REPORT INFORMATION
  Report Type: Report from Study
  Country: KE (occurrence: KE)
  Receive Date: 20140905
  Receipt Date: 20140912
  Transmission Date: 20150326
  Serious: Yes (Hospitalization)
  Sender: FDA-Public Use
  Company Number: KE-GILEAD-2014-0114025

PATIENT
  Age: 26 Year
  Sex: Female
  Weight: 71 kg

DRUGS (6)
  1. FANSIDAR [Concomitant]
     Active Substance: PYRIMETHAMINE\SULFADOXINE
     Indication: MALARIA PROPHYLAXIS
  2. FOLIC ACID. [Concomitant]
     Active Substance: FOLIC ACID
  3. TETANUS VACCINE [Concomitant]
     Active Substance: CLOSTRIDIUM TETANI TOXOID ANTIGEN (FORMALDEHYDE INACTIVATED)
  4. EMTRICITABINE/TENOFOVIR DISOPROXIL FUMARATE [Suspect]
     Active Substance: EMTRICITABINE\TENOFOVIR DISOPROXIL
     Indication: PROPHYLAXIS AGAINST HIV INFECTION
     Dosage: UNK
     Route: 065
     Dates: start: 20140424, end: 20140722
  5. EMTRICITABINE/TENOFOVIR DISOPROXIL FUMARATE [Suspect]
     Active Substance: EMTRICITABINE\TENOFOVIR DISOPROXIL
     Dosage: UNK
     Route: 065
     Dates: start: 20131107, end: 20131203
  6. FERROUS SULFATE [Concomitant]
     Active Substance: FERROUS SULFATE\FERROUS SULFATE, DRIED

REACTIONS (1)
  - Pregnancy [Recovered/Resolved]

NARRATIVE: CASE EVENT DATE: 20131015
